FAERS Safety Report 6773403-8 (Version None)
Quarter: 2010Q2

REPORT INFORMATION
  Report Type: 
  Country: None (occurrence: None)
  Receive Date: 20100616
  Receipt Date: 20100429
  Transmission Date: 20101027
  Serious: No
  Sender: FDA-Public Use
  Company Number: US-ABBOTT-10P-163-0642177-00

PATIENT

DRUGS (6)
  1. TRILIPIX [Suspect]
     Indication: BLOOD CHOLESTEROL INCREASED
     Dates: start: 20100426
  2. NIACIN [Concomitant]
     Indication: BLOOD CHOLESTEROL INCREASED
  3. CELEBREX [Concomitant]
     Indication: ARTHRITIS
     Dosage: AS DIRECTED
  4. LASIX [Concomitant]
     Indication: MITRAL VALVE PROLAPSE
  5. TOPROL-XL [Concomitant]
     Indication: HYPERTENSION
     Dosage: AS DIRECTED
  6. ACIPHEX [Concomitant]
     Indication: GASTROOESOPHAGEAL REFLUX DISEASE
     Dosage: AS DIRECTED

REACTIONS (2)
  - DIARRHOEA [None]
  - FAECES DISCOLOURED [None]
